FAERS Safety Report 17241647 (Version 1)
Quarter: 2020Q1

REPORT INFORMATION
  Report Type: Report from Study
  Country: US (occurrence: US)
  Receive Date: 20200107
  Receipt Date: 20200107
  Transmission Date: 20200409
  Serious: No
  Sender: FDA-Public Use
  Company Number: NVSC2020US001889

PATIENT
  Age: 46 Year
  Sex: Female

DRUGS (1)
  1. COSENTYX [Suspect]
     Active Substance: SECUKINUMAB
     Indication: PSORIASIS
     Dosage: 300 MG (EVERY 28 DAYS)
     Route: 058
     Dates: start: 20190827

REACTIONS (1)
  - Rhinitis allergic [Not Recovered/Not Resolved]

NARRATIVE: CASE EVENT DATE: 20191223
